FAERS Safety Report 6238988-9 (Version None)
Quarter: 2009Q2

REPORT INFORMATION
  Report Type: 
  Country: None (occurrence: None)
  Receive Date: 20090622
  Receipt Date: 20090608
  Transmission Date: 20091009
  Serious: Yes (Hospitalization)
  Sender: FDA-Public Use
  Company Number: A0792337A

PATIENT
  Age: 77 Year
  Sex: Male

DRUGS (1)
  1. ROSIGLITAZONE MALEATE [Suspect]
     Dosage: 8MG PER DAY
     Route: 048
     Dates: start: 20060125, end: 20070601

REACTIONS (5)
  - ACUTE MYOCARDIAL INFARCTION [None]
  - CARDIAC ARREST [None]
  - CORONARY ARTERY STENOSIS [None]
  - HEART INJURY [None]
  - SCAR [None]
